FAERS Safety Report 7536169-X (Version None)
Quarter: 2011Q2

REPORT INFORMATION
  Report Type: 
  Country: None (occurrence: None)
  Receive Date: 20110608
  Receipt Date: 20110608
  Transmission Date: 20111010
  Serious: Yes (Life-Threatening)
  Sender: FDA-Public Use
  Company Number: None

PATIENT
  Age: 45 Year
  Sex: Female

DRUGS (1)
  1. DIPHENHYDRAMINE HYDROCHLORIDE [Suspect]
     Indication: SLEEP DISORDER
     Dosage: 25-50MG NIGHTLY PO
     Route: 048

REACTIONS (3)
  - MOOD SWINGS [None]
  - SUICIDAL IDEATION [None]
  - DEPRESSION [None]
